FAERS Safety Report 13743204 (Version 3)
Quarter: 2017Q3

REPORT INFORMATION
  Report Type: Spontaneous
  Country: IN (occurrence: IN)
  Receive Date: 20170711
  Receipt Date: 20170810
  Transmission Date: 20171127
  Serious: Yes (Hospitalization, Other)
  Sender: FDA-Public Use
  Company Number: IN-ABBVIE-17P-078-2032117-00

PATIENT
  Age: 37 Year
  Sex: Male

DRUGS (6)
  1. SODIUM VALPROATE [Suspect]
     Active Substance: VALPROATE SODIUM
     Indication: AFFECTIVE DISORDER
     Route: 048
     Dates: start: 201512
  2. TRIHEXYPHENIDYL [Concomitant]
     Active Substance: TRIHEXYPHENIDYL
     Indication: PRODUCT USED FOR UNKNOWN INDICATION
  3. CLONAZEPAM. [Concomitant]
     Active Substance: CLONAZEPAM
     Indication: PRODUCT USED FOR UNKNOWN INDICATION
  4. HALOPERIDOL. [Concomitant]
     Active Substance: HALOPERIDOL
     Indication: PRODUCT USED FOR UNKNOWN INDICATION
  5. SODIUM VALPROATE [Suspect]
     Active Substance: VALPROATE SODIUM
     Indication: BIPOLAR DISORDER
     Route: 048
  6. INFLIXIMAB [Concomitant]
     Active Substance: INFLIXIMAB
     Indication: PRODUCT USED FOR UNKNOWN INDICATION

REACTIONS (6)
  - Hyperammonaemia [Recovered/Resolved]
  - Disorientation [Recovered/Resolved]
  - Pruritus generalised [Recovered/Resolved]
  - Mania [Recovered/Resolved]
  - Gingival hypertrophy [Unknown]
  - Vomiting [Recovered/Resolved]

NARRATIVE: CASE EVENT DATE: 201512
